FAERS Safety Report 13037750 (Version 1)
Quarter: 2016Q4

REPORT INFORMATION
  Report Type: Spontaneous
  Country: GB (occurrence: GB)
  Receive Date: 20161217
  Receipt Date: 20161217
  Transmission Date: 20170207
  Serious: Yes (Other)
  Sender: FDA-Public Use
  Company Number: GB-ASTRAZENECA-2016SF30353

PATIENT
  Age: 53 Year
  Sex: Male
  Weight: 139 kg

DRUGS (9)
  1. DAPAGLIFLOZIN [Suspect]
     Active Substance: DAPAGLIFLOZIN
     Indication: DIABETES MELLITUS INADEQUATE CONTROL
     Route: 048
     Dates: start: 20160525, end: 20160602
  2. ATENOLOL. [Concomitant]
     Active Substance: ATENOLOL
  3. FENOFIBRATE. [Concomitant]
     Active Substance: FENOFIBRATE
  4. LINAGLIPTIN [Concomitant]
     Active Substance: LINAGLIPTIN
  5. PARACETAMOL [Concomitant]
     Active Substance: ACETAMINOPHEN
  6. ASPIRIN. [Concomitant]
     Active Substance: ASPIRIN
  7. METFORMIN [Concomitant]
     Active Substance: METFORMIN HYDROCHLORIDE
  8. AMLODIPINE [Concomitant]
     Active Substance: AMLODIPINE BESYLATE
  9. SIMVASTATIN. [Concomitant]
     Active Substance: SIMVASTATIN

REACTIONS (1)
  - Hyperosmolar hyperglycaemic state [Recovered/Resolved]

NARRATIVE: CASE EVENT DATE: 20160602
